FAERS Safety Report 19613105 (Version 1)
Quarter: 2021Q3

REPORT INFORMATION
  Report Type: Report from Study
  Country: CN (occurrence: CN)
  Receive Date: 20210727
  Receipt Date: 20210727
  Transmission Date: 20211014
  Serious: Yes (Other)
  Sender: FDA-Public Use
  Company Number: CN-SUN PHARMACEUTICAL INDUSTRIES LTD-2021R1-305261

PATIENT
  Age: 80 Year
  Sex: Male

DRUGS (2)
  1. DOCETAXEL. [Suspect]
     Active Substance: DOCETAXEL
     Indication: HORMONE-REFRACTORY PROSTATE CANCER
     Dosage: 60?75 MG/M2, 10 CYCLES
     Route: 065
  2. PREDNISOLONE. [Suspect]
     Active Substance: PREDNISOLONE
     Indication: HORMONE-REFRACTORY PROSTATE CANCER
     Dosage: 5 MILLIGRAM, BID
     Route: 065

REACTIONS (2)
  - Disease progression [Unknown]
  - Granulocytopenia [Unknown]
